FAERS Safety Report 8549606-9 (Version None)
Quarter: 2012Q3

REPORT INFORMATION
  Report Type: 
  Country: None (occurrence: None)
  Receive Date: 20120730
  Receipt Date: 20120112
  Transmission Date: 20120928
  Serious: Yes (Other)
  Sender: FDA-Public Use
  Company Number: US-ROCHE-1092951

PATIENT
  Sex: Female

DRUGS (8)
  1. XOLAIR [Suspect]
     Indication: RHINITIS SEASONAL
  2. BIAXIN (UNITED STATES) [Concomitant]
     Dates: start: 20071128
  3. ASTHALIN [Concomitant]
     Dates: start: 20071130
  4. XYZAL [Concomitant]
     Dates: start: 20071213
  5. PREDNISONE [Concomitant]
     Dates: start: 20071128
  6. SINGULAIR [Concomitant]
     Dates: start: 20071213
  7. ADVAIR DISKUS 100/50 [Concomitant]
     Dosage: 500/50
     Dates: start: 20071130
  8. XOLAIR [Suspect]
     Indication: ASTHMA
     Dates: start: 20040101

REACTIONS (2)
  - SINUSITIS [None]
  - HYPERSENSITIVITY [None]
